FAERS Safety Report 11843440 (Version 1)
Quarter: 2015Q4

REPORT INFORMATION
  Report Type: Spontaneous
  Country: US (occurrence: US)
  Receive Date: 20151217
  Receipt Date: 20151217
  Transmission Date: 20160305
  Serious: Yes (Death, Other)
  Sender: FDA-Public Use
  Company Number: US-PAR PHARMACEUTICAL COMPANIES-2015SCPR014729

PATIENT
  Age: 33 Year
  Sex: Male

DRUGS (1)
  1. FENTANYL. [Suspect]
     Active Substance: FENTANYL
     Indication: PRODUCT USED FOR UNKNOWN INDICATION
     Dosage: UNK, UNKNOWN, INHAL
     Route: 045

REACTIONS (11)
  - Blood pressure systolic increased [None]
  - Toxicity to various agents [Fatal]
  - Paralysis [Fatal]
  - Agitation [Fatal]
  - Electrocardiogram QT prolonged [None]
  - Death [Fatal]
  - Unresponsive to stimuli [Fatal]
  - Cardiac arrest [Fatal]
  - Hypoventilation [Fatal]
  - Electrocardiogram QRS complex prolonged [None]
  - Seizure [Fatal]

NARRATIVE: CASE EVENT DATE: 2014
